FAERS Safety Report 6956826-3 (Version None)
Quarter: 2010Q3

REPORT INFORMATION
  Report Type: 
  Country: None (occurrence: None)
  Receive Date: 20100830
  Receipt Date: 20100818
  Transmission Date: 20110219
  Serious: Yes (Hospitalization)
  Sender: FDA-Public Use
  Company Number: FR-GENENTECH-305689

PATIENT
  Age: 49 Year
  Sex: Female

DRUGS (3)
  1. OMALIZUMAB [Suspect]
     Indication: ASTHMA
     Dosage: 1 DF, 1/MONTH
     Route: 058
     Dates: start: 20100401
  2. OMALIZUMAB [Suspect]
     Dosage: 1 DF, 1/MONTH
     Route: 058
     Dates: start: 20100501
  3. OMALIZUMAB [Suspect]
     Dosage: 1 DF, 1/MONTH
     Route: 058
     Dates: start: 20100601

REACTIONS (5)
  - CENTRAL NERVOUS SYSTEM INFLAMMATION [None]
  - CSF OLIGOCLONAL BAND PRESENT [None]
  - DEMYELINATION [None]
  - DYSARTHRIA [None]
  - HEMIPARESIS [None]
